FAERS Safety Report 23323020 (Version 1)
Quarter: 2023Q4

REPORT INFORMATION
  Report Type: Spontaneous
  Country: US (occurrence: None)
  Receive Date: 20231220
  Receipt Date: 20231220
  Transmission Date: 20240110
  Serious: No
  Sender: FDA-Public Use
  Company Number: US-ROCHE-3265510

PATIENT
  Weight: 177 kg

DRUGS (2)
  1. RITUXAN [Suspect]
     Active Substance: RITUXIMAB
     Indication: Congenital syphilitic osteochondritis
     Dosage: 1 G EVERY WEEK FOR 4 WEEKS
     Route: 042
     Dates: start: 20221121, end: 20221212
  2. RITUXAN [Suspect]
     Active Substance: RITUXIMAB
     Dosage: TWO 500 MG DOSES SEPARATED BY 2 WEEKS
     Route: 042
     Dates: start: 20221227

REACTIONS (2)
  - Off label use [Unknown]
  - No adverse event [Unknown]

NARRATIVE: CASE EVENT DATE: 20221121
